FAERS Safety Report 13119472 (Version 1)
Quarter: 2017Q1

REPORT INFORMATION
  Report Type: Spontaneous
  Country: US (occurrence: US)
  Receive Date: 20170116
  Receipt Date: 20170116
  Transmission Date: 20170428
  Serious: No
  Sender: FDA-Public Use
  Company Number: US-TAIHO ONCOLOGY INC-EU-2017-00031

PATIENT
  Age: 69 Year
  Sex: Female

DRUGS (25)
  1. MICARDIS [Concomitant]
     Active Substance: TELMISARTAN
     Dosage: NI
  2. XANAX [Concomitant]
     Active Substance: ALPRAZOLAM
     Dosage: NI
  3. ELIDEL [Concomitant]
     Active Substance: PIMECROLIMUS
     Dosage: NI
  4. PYRIDOXINE HYDROCHLORIDE. [Concomitant]
     Active Substance: PYRIDOXINE HYDROCHLORIDE
     Dosage: NI
  5. VALACICLOVIR HYDROCHLORIDE [Concomitant]
     Active Substance: VALACYCLOVIR HYDROCHLORIDE
     Dosage: NI
  6. LORAZEPAM. [Concomitant]
     Active Substance: LORAZEPAM
     Dosage: NI
  7. DOCUSATE SODIUM. [Concomitant]
     Active Substance: DOCUSATE SODIUM
     Dosage: NI
  8. NYSTATIN. [Concomitant]
     Active Substance: NYSTATIN
     Dosage: NI
  9. TIROSINT [Concomitant]
     Active Substance: LEVOTHYROXINE SODIUM
     Dosage: NI
  10. NORVASC [Concomitant]
     Active Substance: AMLODIPINE BESYLATE
     Dosage: NI
  11. HYOSCYAMINE. [Concomitant]
     Active Substance: HYOSCYAMINE
     Dosage: NI
  12. LEVAQUIN [Concomitant]
     Active Substance: LEVOFLOXACIN
     Dosage: NI
  13. LONSURF [Suspect]
     Active Substance: TIPIRACIL HYDROCHLORIDE\TRIFLURIDINE
     Indication: CARCINOID TUMOUR
     Route: 048
     Dates: start: 201612
  14. NEXIUM [Concomitant]
     Active Substance: ESOMEPRAZOLE MAGNESIUM
     Dosage: NI
  15. WELLBUTRIN [Concomitant]
     Active Substance: BUPROPION HYDROCHLORIDE
     Dosage: NI
  16. TRAMADOL HYDROCHLORIDE. [Concomitant]
     Active Substance: TRAMADOL HYDROCHLORIDE
     Dosage: NI
  17. PAZEO [Concomitant]
     Active Substance: OLOPATADINE HYDROCHLORIDE
     Dosage: NI
  18. PROMETHAZINE [Concomitant]
     Active Substance: PROMETHAZINE\PROMETHAZINE HYDROCHLORIDE
     Dosage: NI
  19. MAGNESIUM [Concomitant]
     Active Substance: MAGNESIUM
     Dosage: NI
  20. VALTREX [Concomitant]
     Active Substance: VALACYCLOVIR HYDROCHLORIDE
     Dosage: NI
  21. CENTRUM SILVER [Concomitant]
     Active Substance: MINERALS\VITAMINS
     Dosage: NI
  22. CITRACAL CAL + D [Concomitant]
  23. CARISOPRODOL. [Concomitant]
     Active Substance: CARISOPRODOL
     Dosage: NI
  24. ZOFRAN [Concomitant]
     Active Substance: ONDANSETRON HYDROCHLORIDE
     Dosage: NI
  25. COLECALCIFEROL [Concomitant]
     Active Substance: CHOLECALCIFEROL
     Dosage: NI

REACTIONS (1)
  - Fatigue [Unknown]

NARRATIVE: CASE EVENT DATE: 201612
